FAERS Safety Report 17982207 (Version 1)
Quarter: 2020Q3

REPORT INFORMATION
  Report Type: Spontaneous
  Country: US (occurrence: US)
  Receive Date: 20200703
  Receipt Date: 20200703
  Transmission Date: 20201103
  Serious: Yes (Life-Threatening)
  Sender: FDA-Public Use
  Company Number: None

PATIENT
  Age: 51 Year
  Sex: Male
  Weight: 106.4 kg

DRUGS (21)
  1. ALBUTEROL 4MG [Concomitant]
     Dates: start: 20200629, end: 20200629
  2. FUROSEMIDE 40MG [Concomitant]
     Active Substance: FUROSEMIDE
     Dates: start: 20200627, end: 20200629
  3. VERSED DRIP [Concomitant]
     Dates: start: 20200628, end: 20200702
  4. AMLODIPINE [Concomitant]
     Active Substance: AMLODIPINE BESYLATE
     Dates: start: 20200629, end: 20200703
  5. POTASSIUM CHLORIDE 20MEQ [Concomitant]
     Active Substance: POTASSIUM CHLORIDE
     Dates: start: 20200629, end: 20200630
  6. FENTANYL DRIP [Concomitant]
     Dates: start: 20200627, end: 20200702
  7. REMDESIVIR. [Suspect]
     Active Substance: REMDESIVIR
     Indication: COVID-19
     Route: 040
     Dates: start: 20200628, end: 20200701
  8. CEFTRIAXONE 1G [Concomitant]
     Dates: start: 20200627, end: 20200703
  9. PANTOPRAZOLE 40MG [Concomitant]
     Active Substance: PANTOPRAZOLE SODIUM
     Dates: start: 20200627, end: 20200703
  10. PROPOFOL DRIP [Concomitant]
     Active Substance: PROPOFOL
     Dates: start: 20200630, end: 20200702
  11. REMDESIVIR. [Suspect]
     Active Substance: REMDESIVIR
     Indication: COVID-19
     Dosage: ?          OTHER FREQUENCY:ONCE;?
     Route: 040
     Dates: start: 20200627, end: 20200627
  12. VANCOMYCIN 1500MG [Concomitant]
     Active Substance: VANCOMYCIN
     Dates: start: 20200630, end: 20200701
  13. PRECEDEX DRIP [Concomitant]
     Dates: start: 20200630, end: 20200630
  14. ENOXAPARIN 100MG [Concomitant]
     Active Substance: ENOXAPARIN
     Dates: start: 20200627, end: 20200702
  15. SERTRALINE [Concomitant]
     Active Substance: SERTRALINE HYDROCHLORIDE
     Dates: start: 20200629, end: 20200703
  16. CHOLRHEXIDINE MOUTHWASH [Concomitant]
     Dates: start: 20200630, end: 20200702
  17. DEXAMETHASONE 6MG [Concomitant]
     Dates: start: 20200627, end: 20200703
  18. MIRALAX 17G [Concomitant]
     Dates: start: 20200629, end: 20200630
  19. AZITHROMYCIN 500MG [Concomitant]
     Active Substance: AZITHROMYCIN
     Dates: start: 20200627, end: 20200628
  20. GUAIFENESIN 400MG [Concomitant]
     Dates: start: 20200701, end: 20200703
  21. NOREPINEPHRINE DRIP [Concomitant]
     Dates: start: 20200701, end: 20200702

REACTIONS (2)
  - Blood urea increased [None]
  - Acute kidney injury [None]

NARRATIVE: CASE EVENT DATE: 20200701
